FAERS Safety Report 16257554 (Version 1)
Quarter: 2019Q2

REPORT INFORMATION
  Report Type: Report from Study
  Country: CA (occurrence: CA)
  Receive Date: 20190430
  Receipt Date: 20190430
  Transmission Date: 20190711
  Serious: Yes (Hospitalization, Other)
  Sender: FDA-Public Use
  Company Number: CA-JNJFOC-20190434841

PATIENT
  Age: 76 Year
  Sex: Male

DRUGS (1)
  1. REMICADE [Suspect]
     Active Substance: INFLIXIMAB
     Indication: RHEUMATOID ARTHRITIS
     Dosage: STRENGTH = 100 MG MG
     Route: 042

REACTIONS (3)
  - Sinusitis [Not Recovered/Not Resolved]
  - Skin cancer [Unknown]
  - Herpes zoster [Unknown]

NARRATIVE: CASE EVENT DATE: 201904
